FAERS Safety Report 23580145 (Version 2)
Quarter: 2024Q1

REPORT INFORMATION
  Report Type: Spontaneous
  Country: JP (occurrence: JP)
  Receive Date: 20240229
  Receipt Date: 20240308
  Transmission Date: 20240410
  Serious: Yes (Hospitalization, Other)
  Sender: FDA-Public Use
  Company Number: JP-JNJFOC-A-CH2019-195653

PATIENT
  Age: 24 Year
  Sex: Female
  Weight: 53 kg

DRUGS (43)
  1. EPOPROSTENOL [Suspect]
     Active Substance: EPOPROSTENOL
     Indication: Pulmonary arterial hypertension
     Dosage: 3.9 NG/KG, PER MIN
     Route: 041
     Dates: start: 201903, end: 201903
  2. EPOPROSTENOL [Suspect]
     Active Substance: EPOPROSTENOL
     Dosage: 5.3 NG/KG, PER MIN
     Route: 041
  3. EPOPROSTENOL [Suspect]
     Active Substance: EPOPROSTENOL
     Route: 041
     Dates: start: 20190323, end: 201903
  4. EPOPROSTENOL [Suspect]
     Active Substance: EPOPROSTENOL
     Route: 041
     Dates: start: 201903, end: 201903
  5. EPOPROSTENOL [Suspect]
     Active Substance: EPOPROSTENOL
     Route: 041
     Dates: start: 201903, end: 201903
  6. EPOPROSTENOL [Suspect]
     Active Substance: EPOPROSTENOL
     Route: 041
     Dates: start: 201903, end: 201903
  7. EPOPROSTENOL [Suspect]
     Active Substance: EPOPROSTENOL
     Route: 041
     Dates: start: 20190329, end: 20190419
  8. OPSUMIT [Suspect]
     Active Substance: MACITENTAN
     Indication: Pulmonary arterial hypertension
     Dosage: 10 MG
     Route: 048
  9. OPSUMIT [Suspect]
     Active Substance: MACITENTAN
     Indication: Pulmonary arterial hypertension
     Route: 048
     Dates: start: 20190326, end: 20190326
  10. OPSUMIT [Suspect]
     Active Substance: MACITENTAN
     Route: 048
     Dates: start: 20190327
  11. TADALAFIL [Concomitant]
     Active Substance: TADALAFIL
     Indication: Pulmonary arterial hypertension
     Dosage: 10 MG
  12. MIDAZOLAM [Concomitant]
     Active Substance: MIDAZOLAM
  13. FENTANYL [Concomitant]
     Active Substance: FENTANYL\FENTANYL CITRATE
  14. ROCURONIUM [Concomitant]
     Active Substance: ROCURONIUM BROMIDE
  15. SEVOFLURANE [Concomitant]
     Active Substance: SEVOFLURANE
  16. NOREPINEPHRINE [Concomitant]
     Active Substance: NOREPINEPHRINE\NOREPINEPHRINE BITARTRATE
  17. ATONIN [Concomitant]
     Dosage: 5 DF, QD
  18. PRECEDEX [Concomitant]
     Active Substance: DEXMEDETOMIDINE HYDROCHLORIDE
  19. DOBUTAMINE HYDROCHLORIDE [Concomitant]
     Active Substance: DOBUTAMINE HYDROCHLORIDE
     Indication: Right ventricular failure
     Route: 042
     Dates: start: 20190319, end: 20190413
  20. DOPAMINE [Concomitant]
     Active Substance: DOPAMINE HYDROCHLORIDE
     Dosage: 2.9GAMMA
     Route: 065
  21. DOPAMINE [Concomitant]
     Active Substance: DOPAMINE HYDROCHLORIDE
     Dosage: 0.9GAMMA
     Route: 065
  22. INOVAN [DOPAMINE HYDROCHLORIDE] [Concomitant]
     Indication: Right ventricular failure
     Route: 042
     Dates: start: 20190329, end: 20190405
  23. ADCIRCA [Concomitant]
     Active Substance: TADALAFIL
     Indication: Pulmonary arterial hypertension
     Dosage: 2.5MG-40MGX2/DAY
     Route: 048
     Dates: start: 20190319
  24. SPIRONOLACTONE [Concomitant]
     Active Substance: SPIRONOLACTONE
     Indication: Right ventricular failure
     Route: 048
     Dates: start: 20190327, end: 20190507
  25. AZOSEMIDE [Concomitant]
     Active Substance: AZOSEMIDE
     Indication: Right ventricular failure
     Dosage: 15MG-30MGX1/DAY
     Route: 048
     Dates: start: 20190403, end: 20190426
  26. AZOSEMIDE [Concomitant]
     Active Substance: AZOSEMIDE
     Indication: Right ventricular failure
     Route: 048
     Dates: start: 20190507
  27. EDOXABAN TOSYLATE [Concomitant]
     Active Substance: EDOXABAN TOSYLATE
     Indication: Jugular vein thrombosis
     Route: 048
     Dates: start: 20190418, end: 20190507
  28. FEBUXOSTAT [Concomitant]
     Active Substance: FEBUXOSTAT
     Indication: Hyperuricaemia
     Route: 048
     Dates: start: 20190424, end: 20190428
  29. MIRTAZAPINE [Concomitant]
     Active Substance: MIRTAZAPINE
     Route: 048
  30. FUROSEMIDE [Concomitant]
     Active Substance: FUROSEMIDE
     Indication: Right ventricular failure
     Route: 041
     Dates: start: 20190327, end: 20190403
  31. CARBOCYSTEINE [Concomitant]
     Active Substance: CARBOCYSTEINE
     Indication: Bronchitis
     Route: 048
     Dates: start: 20190328, end: 20190425
  32. DEXTROMETHORPHAN HYDROBROMIDE [Concomitant]
     Active Substance: DEXTROMETHORPHAN HYDROBROMIDE
     Indication: Bronchitis
     Route: 048
     Dates: start: 20190404, end: 20190425
  33. POTASSIUM CHLORIDE [Concomitant]
     Active Substance: POTASSIUM CHLORIDE
     Indication: Hypokalaemia
     Route: 048
     Dates: start: 20190507
  34. SODIUM FERROUS CITRATE [Concomitant]
     Active Substance: SODIUM FERROUS CITRATE
     Indication: Normocytic anaemia
     Dosage: 50MG-100MGX2/DAY
     Route: 048
     Dates: start: 20190703
  35. LANSOPRAZOLE [Concomitant]
     Active Substance: LANSOPRAZOLE
     Indication: Prophylaxis
     Route: 048
     Dates: start: 20190320, end: 20190507
  36. HEPARIN [Concomitant]
     Active Substance: HEPARIN SODIUM
     Indication: Pulmonary arterial hypertension
     Route: 042
     Dates: start: 20190320, end: 20190410
  37. IRON SUCROSE [Concomitant]
     Active Substance: IRON SUCROSE
     Indication: Normocytic anaemia
     Route: 042
     Dates: start: 20190322, end: 20190327
  38. REMIFENTANIL [Concomitant]
     Active Substance: REMIFENTANIL
     Indication: Anaesthesia procedure
     Dosage: 2V-5VX1/DAY
     Route: 042
     Dates: start: 20190326, end: 20190326
  39. FENTANYL [Concomitant]
     Active Substance: FENTANYL\FENTANYL CITRATE
     Indication: Anaesthesia procedure
     Route: 042
     Dates: start: 20190326, end: 20190326
  40. FENTANYL [Concomitant]
     Active Substance: FENTANYL\FENTANYL CITRATE
     Indication: Anaesthesia procedure
     Dosage: 2AX1-2/DAY
     Route: 042
     Dates: start: 20190326, end: 20190328
  41. AMPICILLIN [Concomitant]
     Active Substance: AMPICILLIN
     Indication: Prophylaxis
     Route: 042
     Dates: start: 20190326, end: 20190326
  42. GENTAMICIN SULFATE [Concomitant]
     Active Substance: GENTAMICIN SULFATE
     Indication: Prophylaxis
     Route: 042
     Dates: start: 20190326, end: 20190326
  43. CEFAZOLIN SODIUM [Concomitant]
     Active Substance: CEFAZOLIN SODIUM
     Indication: Prophylaxis
     Route: 042
     Dates: start: 20190327, end: 20190403

REACTIONS (10)
  - Exposure during pregnancy [Recovered/Resolved]
  - Caesarean section [Unknown]
  - Premature delivery [Unknown]
  - Pulmonary arterial hypertension [Recovered/Resolved]
  - Condition aggravated [Recovering/Resolving]
  - Hypoxia [Recovering/Resolving]
  - Dyspnoea at rest [Unknown]
  - Catheter placement [Unknown]
  - Phlebotomy [Unknown]
  - Premature baby [Unknown]

NARRATIVE: CASE EVENT DATE: 20190323
